FAERS Safety Report 23190398 (Version 1)
Quarter: 2023Q4

REPORT INFORMATION
  Report Type: Spontaneous
  Country: DE (occurrence: DE)
  Receive Date: 20231116
  Receipt Date: 20231116
  Transmission Date: 20240110
  Serious: Yes (Hospitalization)
  Sender: FDA-Public Use
  Company Number: DE-HIKMA PHARMACEUTICALS USA INC.-DE-H14001-23-67019

PATIENT
  Age: 76 Year
  Sex: Female
  Weight: 78 kg

DRUGS (2)
  1. PACLITAXEL [Suspect]
     Active Substance: PACLITAXEL
     Indication: Ovarian cancer
     Dosage: UNKNOWN
     Route: 065
     Dates: start: 20230914
  2. PACLITAXEL [Suspect]
     Active Substance: PACLITAXEL
     Dosage: UNKNOWN
     Route: 065
     Dates: start: 20231005

REACTIONS (4)
  - Blood pressure decreased [Recovered/Resolved]
  - Flushing [Recovered/Resolved]
  - Dyspnoea [Recovered/Resolved]
  - Back pain [Recovered/Resolved]

NARRATIVE: CASE EVENT DATE: 20230914
